FAERS Safety Report 20094799 (Version 4)
Quarter: 2022Q1

REPORT INFORMATION
  Report Type: Report from Study
  Country: DE (occurrence: DE)
  Receive Date: 20211122
  Receipt Date: 20220106
  Transmission Date: 20220423
  Serious: Yes (Death, Other)
  Sender: FDA-Public Use
  Company Number: DE-BRISTOL-MYERS SQUIBB COMPANY-BMS-2021-124387

PATIENT
  Age: 74 Year
  Sex: Male

DRUGS (7)
  1. NIVOLUMAB [Suspect]
     Active Substance: NIVOLUMAB
     Indication: Squamous cell carcinoma of head and neck
     Dosage: UNK UNK, Q2WK
     Route: 042
     Dates: start: 20200304, end: 202102
  2. MORPHINE [Concomitant]
     Active Substance: MORPHINE
     Indication: Neoplasm
     Dosage: 10 TO 40 MG IN CASE OF PAIN
     Route: 065
  3. ACETAMINOPHEN [Concomitant]
     Active Substance: ACETAMINOPHEN
     Indication: Neoplasm
     Dosage: 500-2000MG IN THE CASE OF PAIN
     Route: 065
  4. METAMIZOLE [Concomitant]
     Active Substance: METAMIZOLE
     Indication: Neoplasm
     Dosage: 90 DROPS
     Route: 065
     Dates: start: 20200505
  5. METAMIZOLE [Concomitant]
     Active Substance: METAMIZOLE
     Dosage: 160 DROPS
     Route: 065
  6. IBUPROFEN [Concomitant]
     Active Substance: IBUPROFEN
     Indication: Product used for unknown indication
     Dosage: 600 MG, IN THE CASE OF PAIN
     Route: 058
  7. FENTANYL [Concomitant]
     Active Substance: FENTANYL
     Indication: Neoplasm
     Dosage: 75 MCG EVERY 3 DAYS
     Route: 065

REACTIONS (1)
  - Death [Fatal]

NARRATIVE: CASE EVENT DATE: 20211004
